FAERS Safety Report 18394109 (Version 1)
Quarter: 2020Q4

REPORT INFORMATION
  Report Type: Spontaneous
  Country: CA (occurrence: CA)
  Receive Date: 20201016
  Receipt Date: 20201016
  Transmission Date: 20210114
  Serious: Yes (Death)
  Sender: FDA-Public Use
  Company Number: CA-EXELIXIS-CABO-20031438

PATIENT
  Age: 15 Year
  Sex: Male
  Weight: 72.4 kg

DRUGS (1)
  1. CABOMETYX [Suspect]
     Active Substance: CABOZANTINIB S-MALATE
     Indication: OSTEOSARCOMA METASTATIC
     Dosage: 60 MG, QD
     Route: 048
     Dates: start: 20200627, end: 20200715

REACTIONS (6)
  - Malignant neoplasm progression [Fatal]
  - Respiratory failure [Fatal]
  - Skin toxicity [Unknown]
  - Palmar-plantar erythrodysaesthesia syndrome [Recovering/Resolving]
  - Neutropenia [Unknown]
  - Off label use [Unknown]

NARRATIVE: CASE EVENT DATE: 20200713
